FAERS Safety Report 12379482 (Version 1)
Quarter: 2016Q2

REPORT INFORMATION
  Report Type: Spontaneous
  Country: US (occurrence: US)
  Receive Date: 20160517
  Receipt Date: 20160517
  Transmission Date: 20160815
  Serious: No
  Sender: FDA-Public Use
  Company Number: US-TEIKOKU PHARMA USA-TPU2015-00463

PATIENT
  Sex: Female
  Weight: 91 kg

DRUGS (21)
  1. VASOCARE [Concomitant]
  2. LIDODERM [Suspect]
     Active Substance: LIDOCAINE
     Indication: FIBROMYALGIA
     Dosage: 3 DAYS ON AND 3 DAYS OFF
     Route: 061
  3. XANAX [Concomitant]
     Active Substance: ALPRAZOLAM
  4. ZYPREXA [Concomitant]
     Active Substance: OLANZAPINE
     Indication: BIPOLAR DISORDER
  5. OMEPRA BICAR [Concomitant]
     Indication: GASTRIC PH DECREASED
  6. VITAMIN B2 [Concomitant]
     Active Substance: RIBOFLAVIN
  7. EYE MEDICINE [Concomitant]
     Indication: CATARACT OPERATION
  8. GABAPENTIN. [Suspect]
     Active Substance: GABAPENTIN
     Indication: NEUROPATHY PERIPHERAL
  9. CRESTOR [Concomitant]
     Active Substance: ROSUVASTATIN CALCIUM
     Dosage: AT BEDTIME
  10. VITAMIN D [Concomitant]
     Active Substance: CHOLECALCIFEROL
  11. ELAVIL [Concomitant]
     Active Substance: AMITRIPTYLINE HYDROCHLORIDE
     Indication: PRODUCT USED FOR UNKNOWN INDICATION
     Dosage: HALF OF A TABLET
  12. LYRICA [Suspect]
     Active Substance: PREGABALIN
     Indication: LIMB DISCOMFORT
     Dates: start: 2014
  13. LOSARTAN. [Concomitant]
     Active Substance: LOSARTAN
     Indication: BLOOD PRESSURE MEASUREMENT
  14. IRON [Concomitant]
     Active Substance: IRON
  15. MAGNESIUM [Concomitant]
     Active Substance: MAGNESIUM
  16. GLUCOPHAGE [Concomitant]
     Active Substance: METFORMIN HYDROCHLORIDE
     Indication: DIABETES MELLITUS
  17. REQUIP [Concomitant]
     Active Substance: ROPINIROLE HYDROCHLORIDE
     Indication: RESTLESS LEGS SYNDROME
  18. LYRICA [Suspect]
     Active Substance: PREGABALIN
  19. BUTALB/ACETAMIN CAFF [Concomitant]
     Indication: MIGRAINE
  20. SKELAXIN [Concomitant]
     Active Substance: METAXALONE
     Indication: MUSCLE SPASMS
  21. PERCOCET [Concomitant]
     Active Substance: ACETAMINOPHEN\OXYCODONE HYDROCHLORIDE
     Indication: PAIN

REACTIONS (3)
  - Gait disturbance [Unknown]
  - Diabetic neuropathy [Unknown]
  - Incorrect drug administration duration [Unknown]
